FAERS Safety Report 6278374-9 (Version None)
Quarter: 2009Q3

REPORT INFORMATION
  Report Type: 
  Country: None (occurrence: None)
  Receive Date: 20090722
  Receipt Date: 20090710
  Transmission Date: 20100115
  Serious: No
  Sender: FDA-Public Use
  Company Number: KR-AVENTIS-200915062GDDC

PATIENT
  Age: 34 Year
  Sex: Female
  Weight: 73 kg

DRUGS (2)
  1. LANTUS [Suspect]
     Indication: DIABETES MELLITUS
     Route: 058
     Dates: start: 20090421
  2. HUMALOG [Concomitant]
     Indication: DIABETES MELLITUS
     Dosage: DOSE: 4-10
     Route: 042
     Dates: start: 20090421

REACTIONS (1)
  - DRUG EXPOSURE DURING PREGNANCY [None]
